FAERS Safety Report 6427295-7 (Version None)
Quarter: 2009Q4

REPORT INFORMATION
  Report Type: 
  Country: None (occurrence: None)
  Receive Date: 20091104
  Receipt Date: 20091030
  Transmission Date: 20100525
  Serious: Yes (Hospitalization)
  Sender: FDA-Public Use
  Company Number: B0600818A

PATIENT
  Age: 84 Year
  Sex: Male

DRUGS (10)
  1. AUGMENTIN [Suspect]
     Indication: RESPIRATORY DISORDER
     Dosage: 1G THREE TIMES PER DAY
     Route: 048
     Dates: start: 20090803, end: 20090819
  2. ACEBUTOLOL [Concomitant]
     Dosage: 50MG IN THE MORNING
     Route: 065
  3. ATHYMIL [Concomitant]
     Dosage: 30MG AT NIGHT
     Route: 065
  4. COUMADIN [Concomitant]
     Dosage: 2MG VARIABLE DOSE
     Route: 065
  5. DEPAMIDE [Concomitant]
     Dosage: 300MG IN THE MORNING
     Route: 065
  6. MONICOR LP [Concomitant]
     Dosage: 40MG IN THE MORNING
     Route: 065
  7. NITRODERM [Concomitant]
     Dosage: 1PAT IN THE MORNING
     Route: 065
  8. NOCTAMIDE [Concomitant]
     Dosage: 2MG AT NIGHT
     Route: 065
  9. PRINZIDE [Concomitant]
     Dosage: 1TAB IN THE MORNING
     Route: 065
  10. STABLON [Concomitant]
     Dosage: 1TAB TWICE PER DAY
     Route: 065

REACTIONS (5)
  - BACTERIAL TEST POSITIVE [None]
  - DIARRHOEA [None]
  - HYPERTHERMIA [None]
  - INFLAMMATION [None]
  - PSEUDOMEMBRANOUS COLITIS [None]
